FAERS Safety Report 16197385 (Version 2)
Quarter: 2020Q2

REPORT INFORMATION
  Report Type: Spontaneous
  Country: FR (occurrence: FR)
  Receive Date: 20190415
  Receipt Date: 20200629
  Transmission Date: 20200713
  Serious: Yes (Other)
  Sender: FDA-Public Use
  Company Number: FR-GLAXOSMITHKLINE-FR2019064808

PATIENT
  Age: 71 Year
  Sex: Female

DRUGS (4)
  1. AZANTAC [Suspect]
     Active Substance: RANITIDINE HYDROCHLORIDE
     Indication: ALLERGY PROPHYLAXIS
     Dosage: 50 MG, CYC
     Route: 042
     Dates: start: 20190214, end: 20190214
  2. PACLITAXEL KABI [Suspect]
     Active Substance: PACLITAXEL
     Indication: TONSIL CANCER
     Dosage: 100 MG, CYC
     Route: 042
     Dates: start: 20190214, end: 20190214
  3. DEXAMETHASONE. [Suspect]
     Active Substance: DEXAMETHASONE
     Indication: ALLERGY PROPHYLAXIS
     Dosage: 8 MG, CYC
     Route: 042
     Dates: start: 20190214, end: 20190214
  4. POLARAMINE [Suspect]
     Active Substance: DEXCHLORPHENIRAMINE MALEATE
     Indication: ALLERGY PROPHYLAXIS
     Dosage: 5 MG, CYC
     Route: 042
     Dates: start: 20190214, end: 20190214

REACTIONS (4)
  - Anxiety [Recovered/Resolved]
  - Hypersensitivity [Recovered/Resolved]
  - Dyspnoea [Recovered/Resolved]
  - Chest discomfort [Recovered/Resolved]

NARRATIVE: CASE EVENT DATE: 20190214
